FAERS Safety Report 24686744 (Version 1)
Quarter: 2024Q4

REPORT INFORMATION
  Report Type: Spontaneous
  Country: US (occurrence: US)
  Receive Date: 20241202
  Receipt Date: 20241202
  Transmission Date: 20250114
  Serious: Yes (Other)
  Sender: JOHNSON AND JOHNSON
  Company Number: US-JNJFOC-20241141473

PATIENT
  Sex: Female

DRUGS (1)
  1. XARELTO [Suspect]
     Active Substance: RIVAROXABAN
     Indication: Product used for unknown indication

REACTIONS (6)
  - Embolism venous [Unknown]
  - Antiphospholipid syndrome [Unknown]
  - Thrombosis [Unknown]
  - Phlebitis [Unknown]
  - Thrombophlebitis [Unknown]
  - Coronavirus infection [Unknown]
